FAERS Safety Report 10261903 (Version 1)
Quarter: 2014Q2

REPORT INFORMATION
  Report Type: Spontaneous
  Country: US (occurrence: US)
  Receive Date: 20140626
  Receipt Date: 20140626
  Transmission Date: 20141212
  Serious: Yes (Other)
  Sender: FDA-Public Use
  Company Number: PHHY2014US078505

PATIENT
  Age: 30 Year
  Sex: Male

DRUGS (2)
  1. CLOZAPINE [Suspect]
     Indication: SCHIZOPHRENIA
     Dosage: 700 MG, PER DAY
  2. NICOTINE [Concomitant]
     Indication: DRUG WITHDRAWAL MAINTENANCE THERAPY
     Dosage: 21 MG, PER DAY
     Route: 062

REACTIONS (9)
  - Toxicity to various agents [Unknown]
  - Tachycardia [Unknown]
  - Poverty of speech [Unknown]
  - Sedation [Unknown]
  - Dyskinesia [Unknown]
  - Memory impairment [Unknown]
  - Fatigue [Unknown]
  - Myoclonus [Unknown]
  - Somnolence [Unknown]
